FAERS Safety Report 23336534 (Version 6)
Quarter: 2024Q2

REPORT INFORMATION
  Report Type: Report from Study
  Country: US (occurrence: US)
  Receive Date: 20231226
  Receipt Date: 20240516
  Transmission Date: 20240716
  Serious: Yes (Hospitalization, Other)
  Sender: FDA-Public Use
  Company Number: US-Merck Healthcare KGaA-2023494744

PATIENT
  Age: 56 Year
  Sex: Female
  Weight: 112 kg

DRUGS (3)
  1. MAVENCLAD [Suspect]
     Active Substance: CLADRIBINE
     Indication: Multiple sclerosis
     Dosage: YEAR ONE MONTH ONE THERAPY
     Route: 048
     Dates: start: 20221025
  2. MAVENCLAD [Suspect]
     Active Substance: CLADRIBINE
     Dosage: YEAR ONE MONTH TWO THERAPY
     Route: 048
  3. MAVENCLAD [Suspect]
     Active Substance: CLADRIBINE
     Dosage: YEAR TWO MONTH ONE THERAPY
     Route: 048
     Dates: start: 20231121

REACTIONS (13)
  - Urinary tract infection [Recovered/Resolved]
  - Oesophageal polyp [Unknown]
  - Decubitus ulcer [Unknown]
  - White blood cell count decreased [Unknown]
  - Full blood count abnormal [Unknown]
  - Computerised tomogram pelvis abnormal [Unknown]
  - Vomiting [Recovering/Resolving]
  - Decreased appetite [Unknown]
  - Hypophagia [Unknown]
  - Weight decreased [Not Recovered/Not Resolved]
  - Blood glucose decreased [Unknown]
  - Fall [Unknown]
  - Asthenia [Not Recovered/Not Resolved]

NARRATIVE: CASE EVENT DATE: 20231129
